FAERS Safety Report 4817194-6 (Version None)
Quarter: 2005Q4

REPORT INFORMATION
  Report Type: 
  Country: None (occurrence: None)
  Receive Date: 20051018
  Receipt Date: 20050202
  Transmission Date: 20060501
  Serious: Yes (Other)
  Sender: FDA-Public Use
  Company Number: PHEH2004US12757

PATIENT
  Age: 74 Year
  Sex: Male

DRUGS (17)
  1. ZOMETA [Suspect]
     Indication: MULTIPLE MYELOMA
     Dosage: 4MG QMO, INTRAVENOUS
     Route: 042
     Dates: start: 20030226, end: 20040305
  2. AREDIA [Suspect]
     Indication: MULTIPLE MYELOMA
     Dosage: 90MG QMO
     Dates: start: 20010404, end: 20030127
  3. AREDIA [Suspect]
     Indication: MULTIPLE MYELOMA
     Dosage: 90MG QMO
     Dates: start: 20040405
  4. CHEMOTHERAPEUTICS, OTHER (CHEMOTHERAPEUTICS, OTHER) [Concomitant]
  5. PRILOSEC [Concomitant]
  6. ZESTRIL [Concomitant]
  7. ASPIRIN [Concomitant]
  8. SYNTHROID [Concomitant]
  9. ATENOLOL [Concomitant]
  10. CLARITIN [Concomitant]
  11. ZOCOR [Concomitant]
  12. HYDROCHLOROTHIAZIDE [Concomitant]
  13. CUTIVATE (FLUTICASONE PROPIONATE) [Concomitant]
  14. OXYCODONE AND ASPIRIN (ACETYLSALICYLIC ACID, OXYCODONE HYDROCHLORIDE, [Concomitant]
  15. MULTIVITAMINS (ASCORBIC ACID, EROGOCALCIFEROL, FOLIC ACID, NICOTINAMID [Concomitant]
  16. CALCIUM W/VITAMIN D NOS (CALCIUM, VITAMIN D NOS) [Concomitant]
  17. METAMUCIL (ISPAGHULA PLANTAGO OVATA) [Concomitant]

REACTIONS (7)
  - IMPAIRED HEALING [None]
  - OPEN WOUND [None]
  - ORAL SURGERY [None]
  - OSTEOMYELITIS CHRONIC [None]
  - OSTEONECROSIS [None]
  - PAIN [None]
  - TOOTH EXTRACTION [None]
